FAERS Safety Report 14343116 (Version 1)
Quarter: 2017Q4

REPORT INFORMATION
  Report Type: Spontaneous
  Country: US (occurrence: US)
  Receive Date: 20171231
  Receipt Date: 20171231
  Transmission Date: 20180321
  Serious: Yes (Disabling, Other)
  Sender: FDA-Public Use
  Company Number: None

PATIENT
  Age: 33 Year
  Sex: Male
  Weight: 86.4 kg

DRUGS (2)
  1. KRATOM [Suspect]
     Active Substance: MITRAGYNINE\HERBALS
     Indication: SUBSTANCE USE
     Dosage: ?          QUANTITY:75 CAPSULE(S);?
     Route: 048
     Dates: start: 20151120, end: 20171205
  2. PARNATE [Concomitant]
     Active Substance: TRANYLCYPROMINE SULFATE

REACTIONS (10)
  - Insomnia [None]
  - Impaired work ability [None]
  - Suicidal ideation [None]
  - Loss of employment [None]
  - Nausea [None]
  - Depression [None]
  - Restlessness [None]
  - Drug dependence [None]
  - Withdrawal syndrome [None]
  - Economic problem [None]

NARRATIVE: CASE EVENT DATE: 20151205
